FAERS Safety Report 19959530 (Version 2)
Quarter: 2021Q4

REPORT INFORMATION
  Report Type: Spontaneous
  Country: AR (occurrence: AR)
  Receive Date: 20211015
  Receipt Date: 20211028
  Transmission Date: 20220303
  Serious: Yes (Hospitalization)
  Sender: FDA-Public Use
  Company Number: NVSC2021AR232894

PATIENT
  Age: 71 Year
  Sex: Female

DRUGS (12)
  1. CALCIUM [Suspect]
     Active Substance: CALCIUM
     Indication: Calcium deficiency
     Dosage: 1000 MG, BID
     Route: 065
     Dates: start: 1983
  2. CALCIUM [Suspect]
     Active Substance: CALCIUM
     Dosage: UNK, QD (2 OF 1000 MG)
     Route: 065
     Dates: start: 2020
  3. LOSARTAN POTASSIUM [Concomitant]
     Active Substance: LOSARTAN POTASSIUM
     Indication: Product used for unknown indication
     Dosage: UNK
     Route: 065
  4. AMLODIPINE [Concomitant]
     Active Substance: AMLODIPINE BESYLATE
     Indication: Product used for unknown indication
     Dosage: UNK, QD (1 OF 5 MG,DAILY IN THE MORNING )
     Route: 065
     Dates: start: 20201002
  5. LOSARTAN [Concomitant]
     Active Substance: LOSARTAN
     Indication: Product used for unknown indication
     Dosage: UNK, QD (2 OF 50 MG)
     Route: 065
     Dates: start: 20201002
  6. MOSAPRIDE [Concomitant]
     Active Substance: MOSAPRIDE
     Indication: Product used for unknown indication
     Dosage: UNK, QD (3 OF 5 MG)
     Route: 065
     Dates: start: 20201002
  7. BISOPROLOL [Concomitant]
     Active Substance: BISOPROLOL
     Indication: Product used for unknown indication
     Dosage: UNK, QD (1 OF 2.5 MG)
     Route: 065
     Dates: start: 20201002
  8. CALCITROL [Concomitant]
     Indication: Product used for unknown indication
     Dosage: UNK, QD (2 OF 1.25 MG)
     Route: 065
     Dates: start: 20201002
  9. TOTAL MAGNESIANO [Concomitant]
     Indication: Product used for unknown indication
     Dosage: UNK, QD (2)
     Route: 065
     Dates: start: 20201002
  10. AMINOSOL [Concomitant]
     Indication: Product used for unknown indication
     Dosage: UNK, QD (1 OF 200 MG)
     Route: 065
     Dates: start: 20201002
  11. OMEPRAZOLE [Concomitant]
     Active Substance: OMEPRAZOLE
     Indication: Product used for unknown indication
     Dosage: UNK, QD (1 OF 20 MG, DAILY IN MORNING)
     Route: 065
     Dates: start: 20201002
  12. LEVOTHYROXINE [Concomitant]
     Active Substance: LEVOTHYROXINE
     Indication: Product used for unknown indication
     Dosage: UNK, QD (1 OF 175 MG)
     Route: 065
     Dates: start: 19830302

REACTIONS (16)
  - Colon cancer [Recovering/Resolving]
  - Calcium metabolism disorder [Recovering/Resolving]
  - Blood pressure increased [Recovering/Resolving]
  - Gait inability [Recovering/Resolving]
  - Rectal cancer [Unknown]
  - Peritonitis [Unknown]
  - Muscular weakness [Unknown]
  - Anal fissure [Unknown]
  - Abdominal pain upper [Unknown]
  - Vomiting [Unknown]
  - Calcium deficiency [Recovering/Resolving]
  - Fear [Recovering/Resolving]
  - Anaemia [Recovering/Resolving]
  - Fatigue [Recovering/Resolving]
  - Muscle atrophy [Unknown]
  - Product dose omission issue [Unknown]

NARRATIVE: CASE EVENT DATE: 20201002
